FAERS Safety Report 25923965 (Version 1)
Quarter: 2025Q4

REPORT INFORMATION
  Report Type: Spontaneous
  Country: US (occurrence: US)
  Receive Date: 20251015
  Receipt Date: 20251015
  Transmission Date: 20260117
  Serious: Yes (Other)
  Sender: GERON CORP
  Company Number: US-GERON CORPORATION-US-GER-25-000194

PATIENT

DRUGS (1)
  1. RYTELO [Suspect]
     Active Substance: IMETELSTAT SODIUM
     Indication: Myelodysplastic syndrome
     Dosage: 3.3 MILLIGRAM/KILOGRAM, 4W
     Route: 042

REACTIONS (1)
  - Platelet count decreased [Unknown]
